FAERS Safety Report 6708150-1 (Version None)
Quarter: 2010Q2

REPORT INFORMATION
  Report Type: 
  Country: None (occurrence: None)
  Receive Date: 20100503
  Receipt Date: 20091019
  Transmission Date: 20101027
  Serious: No
  Sender: FDA-Public Use
  Company Number: US-ASTRAZENECA-2009SE20908

PATIENT
  Sex: Female

DRUGS (6)
  1. NEXIUM [Suspect]
     Indication: GASTROOESOPHAGEAL REFLUX DISEASE
     Route: 048
     Dates: start: 20090921, end: 20091018
  2. NEXIUM [Suspect]
     Indication: ASTHMA
     Route: 048
     Dates: start: 20090921, end: 20091018
  3. NEXIUM [Suspect]
     Indication: COUGH
     Route: 048
     Dates: start: 20090921, end: 20091018
  4. NEXIUM [Suspect]
     Route: 048
     Dates: start: 20091018
  5. NEXIUM [Suspect]
     Route: 048
     Dates: start: 20091018
  6. NEXIUM [Suspect]
     Route: 048
     Dates: start: 20091018

REACTIONS (3)
  - DRY MOUTH [None]
  - EYE MOVEMENT DISORDER [None]
  - PALPITATIONS [None]
